FAERS Safety Report 8208461-7 (Version None)
Quarter: 2012Q1

REPORT INFORMATION
  Report Type: 
  Country: None (occurrence: None)
  Receive Date: 20120314
  Receipt Date: 20120309
  Transmission Date: 20120608
  Serious: Yes (Other)
  Sender: FDA-Public Use
  Company Number: GB-PFIZER INC-2012064625

PATIENT
  Age: 89 Year
  Sex: Female

DRUGS (1)
  1. RAMIPRIL [Suspect]

REACTIONS (2)
  - URINARY TRACT INFECTION [None]
  - RENAL FAILURE CHRONIC [None]
